FAERS Safety Report 5391128-0 (Version None)
Quarter: 2007Q3

REPORT INFORMATION
  Report Type: 
  Country: None (occurrence: None)
  Receive Date: 20070719
  Receipt Date: 20070712
  Transmission Date: 20080115
  Serious: Yes (Hospitalization)
  Sender: FDA-Public Use
  Company Number: PHEH2007US09932

PATIENT
  Sex: Male

DRUGS (1)
  1. TEKTURNA [Suspect]
     Dosage: 150 MG, UNK

REACTIONS (2)
  - OEDEMA PERIPHERAL [None]
  - ORTHOPEDIC PROCEDURE [None]
